FAERS Safety Report 9646678 (Version 1)
Quarter: 2013Q4

REPORT INFORMATION
  Report Type: Report from Study
  Country: CA (occurrence: CA)
  Receive Date: 20131027
  Receipt Date: 20131027
  Transmission Date: 20140711
  Serious: Yes (Other)
  Sender: FDA-Public Use
  Company Number: CA-US-EMD SERONO, INC.-7245830

PATIENT
  Age: 12 Year
  Sex: Female
  Weight: 52 kg

DRUGS (1)
  1. SAIZEN [Suspect]
     Indication: GROWTH HORMONE DEFICIENCY
     Dates: start: 20111017, end: 20130120

REACTIONS (2)
  - Headache [Recovered/Resolved]
  - Sleep apnoea syndrome [Not Recovered/Not Resolved]
